FAERS Safety Report 4968186-8 (Version None)
Quarter: 2006Q1

REPORT INFORMATION
  Report Type: 
  Country: None (occurrence: None)
  Receive Date: 20060201
  Receipt Date: 20051006
  Transmission Date: 20060701
  Serious: No
  Sender: FDA-Public Use
  Company Number: 2005PV003033

PATIENT
  Age: 54 Year
  Sex: Female
  Weight: 103.8737 kg

DRUGS (7)
  1. BYETTA [Suspect]
     Indication: DIABETES MELLITUS NON-INSULIN-DEPENDENT
     Dosage: SEE IMAGE
     Route: 058
     Dates: start: 20050917, end: 20051001
  2. BYETTA [Suspect]
     Indication: DIABETES MELLITUS NON-INSULIN-DEPENDENT
     Dosage: SEE IMAGE
     Route: 058
     Dates: start: 20051001
  3. METFORMIN [Concomitant]
  4. AVANDIA [Concomitant]
  5. PROMETRIUM [Concomitant]
  6. ST. JOHN'S WORT [Concomitant]
  7. AVANDIA [Concomitant]

REACTIONS (5)
  - BLOOD GLUCOSE INCREASED [None]
  - INJECTION SITE URTICARIA [None]
  - NAUSEA [None]
  - VOMITING [None]
  - WEIGHT DECREASED [None]
